FAERS Safety Report 12422782 (Version 1)
Quarter: 2016Q2

REPORT INFORMATION
  Report Type: Report from Study
  Country: HN (occurrence: HN)
  Receive Date: 20160601
  Receipt Date: 20160601
  Transmission Date: 20160815
  Serious: Yes (Death)
  Sender: FDA-Public Use
  Company Number: HN-ASTRAZENECA-2016SE58080

PATIENT
  Age: 27605 Day
  Sex: Male

DRUGS (2)
  1. ATACAND PLUS [Suspect]
     Active Substance: CANDESARTAN CILEXETIL\HYDROCHLOROTHIAZIDE
     Dosage: 32/25 MG,UNKNOWN
     Route: 048
     Dates: start: 20131107
  2. CRESTOR [Suspect]
     Active Substance: ROSUVASTATIN CALCIUM
     Dosage: 10.0MG UNKNOWN
     Route: 048
     Dates: start: 20131107

REACTIONS (1)
  - Death [Fatal]

NARRATIVE: CASE EVENT DATE: 20160301
